FAERS Safety Report 6958111-2 (Version None)
Quarter: 2010Q3

REPORT INFORMATION
  Report Type: 
  Country: None (occurrence: None)
  Receive Date: 20100831
  Receipt Date: 20100825
  Transmission Date: 20110219
  Serious: Yes (Other)
  Sender: FDA-Public Use
  Company Number: BR-SANOFI-AVENTIS-2010SA051260

PATIENT
  Age: 57 Year
  Sex: Male
  Weight: 64 kg

DRUGS (11)
  1. LANTUS [Suspect]
     Indication: TYPE 2 DIABETES MELLITUS
     Route: 058
     Dates: start: 20070101
  2. AUTOPEN 24 [Suspect]
     Dates: start: 20070101
  3. ATENOLOL [Concomitant]
     Indication: TACHYCARDIA
     Route: 048
     Dates: start: 19920101
  4. LOSARTAN [Concomitant]
     Indication: BLOOD PRESSURE
     Route: 048
     Dates: start: 19920101
  5. NATRILIX [Concomitant]
     Route: 048
     Dates: start: 19920101
  6. AMARYL [Concomitant]
     Indication: TYPE 2 DIABETES MELLITUS
     Route: 048
     Dates: start: 20090101
  7. SIMVASTATIN [Concomitant]
     Indication: TACHYCARDIA
     Route: 048
     Dates: start: 20090101
  8. PAMELOR [Concomitant]
     Route: 048
  9. SIBUTRAMINE HYDROCHLORIDE MONOHYDRATE [Concomitant]
     Route: 048
  10. NOVORAPID [Concomitant]
     Indication: BLOOD GLUCOSE INCREASED
  11. PURAN T4 [Concomitant]
     Indication: THYROID DISORDER
     Dosage: 50 MCG FROM MONDAY TO FRIDAY AND 75 MCGON WEEKENDS.

REACTIONS (8)
  - HYPERGLYCAEMIA [None]
  - INJECTION SITE HAEMATOMA [None]
  - INJECTION SITE HAEMORRHAGE [None]
  - INJECTION SITE NODULE [None]
  - INJECTION SITE PAIN [None]
  - MENINGITIS [None]
  - THYROID DISORDER [None]
  - WEIGHT INCREASED [None]
